FAERS Safety Report 17446905 (Version 1)
Quarter: 2020Q1

REPORT INFORMATION
  Report Type: Spontaneous
  Country: CN (occurrence: CN)
  Receive Date: 20200221
  Receipt Date: 20200221
  Transmission Date: 20200409
  Serious: Yes (Other)
  Sender: FDA-Public Use
  Company Number: CN-ASTRAZENECA-2020SE24250

PATIENT
  Age: 45 Year
  Sex: Female

DRUGS (4)
  1. OLAPARIB. [Suspect]
     Active Substance: OLAPARIB
     Indication: OVARIAN CANCER
     Route: 048
  2. GLUTATHIONE [Concomitant]
     Active Substance: GLUTATHIONE
     Route: 065
  3. FERROUS SUCCINATE [Concomitant]
     Active Substance: FERROUS SUCCINATE
     Indication: ANAEMIA
     Route: 048
  4. BETALOCK [Concomitant]
     Dosage: HALF A CAPSULE, ONCE A DAY
     Route: 048

REACTIONS (1)
  - Liver injury [Recovering/Resolving]
